FAERS Safety Report 8514373-1 (Version None)
Quarter: 2012Q3

REPORT INFORMATION
  Report Type: 
  Country: None (occurrence: None)
  Receive Date: 20120717
  Receipt Date: 20120709
  Transmission Date: 20120928
  Serious: Yes (Other)
  Sender: FDA-Public Use
  Company Number: US-JNJFOC-20120704481

PATIENT
  Age: 34 Year
  Sex: Male

DRUGS (2)
  1. CYMBALTA [Suspect]
     Indication: PRODUCT USED FOR UNKNOWN INDICATION
     Route: 048
  2. NUCYNTA ER [Suspect]
     Indication: ANALGESIC THERAPY
     Dosage: TWICE PER DAY
     Route: 048
     Dates: end: 20120101

REACTIONS (1)
  - SEROTONIN SYNDROME [None]
